FAERS Safety Report 20528256 (Version 1)
Quarter: 2022Q1

REPORT INFORMATION
  Report Type: Report from Study
  Country: US (occurrence: US)
  Receive Date: 20220228
  Receipt Date: 20220228
  Transmission Date: 20220424
  Serious: Yes (Hospitalization)
  Sender: FDA-Public Use
  Company Number: US-BAUSCH-BL-2020-004900

PATIENT
  Age: 64 Year
  Sex: Male
  Weight: 74.002 kg

DRUGS (4)
  1. XIFAXAN [Suspect]
     Active Substance: RIFAXIMIN
     Indication: Liver disorder
     Dosage: STARTED ABOUT ONE TO ONE AND HALF YEARS AGO
     Route: 048
     Dates: end: 202001
  2. XIFAXAN [Suspect]
     Active Substance: RIFAXIMIN
     Indication: Ammonia increased
     Dosage: REDUCED THE DOSAGE TO 1 TABLET DAILY
     Route: 048
     Dates: start: 202001, end: 2020
  3. XIFAXAN [Suspect]
     Active Substance: RIFAXIMIN
     Dosage: FURTHER REDUCED THE DOSE, ONE TABLET EVERY THREE DAYS
     Route: 048
     Dates: start: 2020
  4. LACTULOSE [Concomitant]
     Active Substance: LACTULOSE
     Indication: Product used for unknown indication

REACTIONS (10)
  - Hospitalisation [Recovered/Resolved]
  - Peripheral swelling [Unknown]
  - Memory impairment [Not Recovered/Not Resolved]
  - Feeling abnormal [Unknown]
  - Mental status changes [Unknown]
  - Ammonia increased [Unknown]
  - Abnormal faeces [Unknown]
  - Constipation [Not Recovered/Not Resolved]
  - Intentional product use issue [Unknown]
  - Therapy interrupted [Unknown]

NARRATIVE: CASE EVENT DATE: 20200101
